FAERS Safety Report 7214162-4 (Version None)
Quarter: 2010Q4

REPORT INFORMATION
  Report Type: 
  Country: None (occurrence: None)
  Receive Date: 20101227
  Receipt Date: 20101203
  Transmission Date: 20110411
  Serious: Yes (Other)
  Sender: FDA-Public Use
  Company Number: 011088

PATIENT
  Sex: Male
  Weight: 81.8 kg

DRUGS (6)
  1. LORTAB [Suspect]
     Indication: PAIN
     Dosage: (10/500MG AS NEEDED ORAL)
     Route: 048
  2. COZAAR [Concomitant]
  3. ASPIRIN /01428701/ [Concomitant]
  4. UROXATRAL [Concomitant]
  5. PREVACID [Concomitant]
  6. ZETIA [Concomitant]

REACTIONS (5)
  - PHYSICAL PRODUCT LABEL ISSUE [None]
  - PRODUCT QUALITY ISSUE [None]
  - PRURITUS [None]
  - SWOLLEN TONGUE [None]
  - URTICARIA [None]
